FAERS Safety Report 4837505-5 (Version None)
Quarter: 2005Q4

REPORT INFORMATION
  Report Type: 
  Country: None (occurrence: None)
  Receive Date: 20051128
  Receipt Date: 20051121
  Transmission Date: 20060501
  Serious: Yes (Hospitalization)
  Sender: FDA-Public Use
  Company Number: JP-JPN-A20052830

PATIENT
  Age: 76 Year
  Sex: Male

DRUGS (4)
  1. ZEFIX [Suspect]
     Indication: HEPATITIS B
     Dosage: 50MG PER DAY
     Route: 048
     Dates: start: 20051021
  2. PARIET [Suspect]
     Route: 048
  3. LACTULOSE [Concomitant]
     Route: 048
  4. POLYMYXIN B SULFATE [Concomitant]
     Route: 048

REACTIONS (1)
  - PANCYTOPENIA [None]
